FAERS Safety Report 9097170 (Version 2)
Quarter: 2013Q1

REPORT INFORMATION
  Report Type: Spontaneous
  Country: MX (occurrence: MX)
  Receive Date: 20130212
  Receipt Date: 20130311
  Transmission Date: 20140127
  Serious: Yes (Other)
  Sender: FDA-Public Use
  Company Number: PHHY2013MX012914

PATIENT
  Age: 65 Year
  Sex: Female

DRUGS (1)
  1. GALVUS [Suspect]
     Indication: DIABETES MELLITUS
     Dosage: 2 DF, DAILY

REACTIONS (3)
  - Eye disorder [Not Recovered/Not Resolved]
  - Blindness [Unknown]
  - Hypertension [Unknown]
